FAERS Safety Report 9448788 (Version 1)
Quarter: 2013Q3

REPORT INFORMATION
  Report Type: Report from Study
  Country: US (occurrence: US)
  Receive Date: 20130808
  Receipt Date: 20130808
  Transmission Date: 20140515
  Serious: Yes (Hospitalization, Other)
  Sender: FDA-Public Use
  Company Number: US-ABBOTT-13P-163-1127955-00

PATIENT
  Age: 45 Year
  Sex: Female
  Weight: 100.33 kg

DRUGS (16)
  1. HUMIRA [Suspect]
     Indication: RHEUMATOID ARTHRITIS
     Dates: start: 201211, end: 201302
  2. HUMIRA [Suspect]
     Dates: start: 201306
  3. ALBUTEROL [Concomitant]
     Indication: CHRONIC OBSTRUCTIVE PULMONARY DISEASE
  4. BENADRYL [Concomitant]
     Indication: HYPERSENSITIVITY
  5. EPIPEN [Concomitant]
     Indication: HYPERSENSITIVITY
  6. PERCOCET [Concomitant]
     Indication: SPINAL CORD COMPRESSION
  7. PERCOCET [Concomitant]
     Indication: ARTHRALGIA
  8. TRAMADOL [Concomitant]
     Indication: PAIN
  9. ZOFRAN [Concomitant]
     Indication: NAUSEA
  10. ZOFRAN [Concomitant]
     Indication: GASTROOESOPHAGEAL REFLUX DISEASE
  11. METHOTREXATE [Concomitant]
     Indication: RHEUMATOID ARTHRITIS
  12. IMITREX [Concomitant]
     Indication: MIGRAINE
  13. PRILOSEC [Concomitant]
     Indication: GASTROOESOPHAGEAL REFLUX DISEASE
  14. MOBIC [Concomitant]
     Indication: PAIN
  15. GABAPENTIN [Concomitant]
     Indication: MIGRAINE
  16. ADVAIR [Concomitant]
     Indication: CHRONIC OBSTRUCTIVE PULMONARY DISEASE

REACTIONS (5)
  - Wound dehiscence [Not Recovered/Not Resolved]
  - Visual impairment [Not Recovered/Not Resolved]
  - Staphylococcal infection [Recovered/Resolved]
  - Enterococcal infection [Recovered/Resolved]
  - Pseudomonas infection [Recovered/Resolved]
